FAERS Safety Report 7324445-5 (Version None)
Quarter: 2011Q1

REPORT INFORMATION
  Report Type: 
  Country: None (occurrence: None)
  Receive Date: 20110301
  Receipt Date: 20110225
  Transmission Date: 20110831
  Serious: No
  Sender: FDA-Public Use
  Company Number: US-PFIZER INC-2011039364

PATIENT
  Sex: Female
  Weight: 79.365 kg

DRUGS (7)
  1. CELEBREX [Suspect]
  2. PAXIL [Concomitant]
     Indication: DEPRESSION
     Dosage: 20 MG, 1X/DAY
     Route: 048
  3. CRESTOR [Concomitant]
     Indication: BLOOD CHOLESTEROL ABNORMAL
     Dosage: 5 MG, 1X/DAY
     Route: 048
  4. CELEBREX [Suspect]
     Indication: OSTEOARTHRITIS
     Dosage: 200 MG, 1X/DAY
     Route: 048
     Dates: start: 20110101
  5. CELEBREX [Suspect]
     Indication: ARTHRALGIA
  6. BENICAR [Concomitant]
     Indication: HYPERTENSION
     Dosage: 20 MG, 1X/DAY
     Route: 048
  7. BUSPAR [Concomitant]
     Indication: ANXIETY
     Dosage: 15 MG, 2X/DAY
     Route: 048

REACTIONS (1)
  - ALOPECIA [None]
